FAERS Safety Report 6861408-8 (Version None)
Quarter: 2010Q3

REPORT INFORMATION
  Report Type: 
  Country: None (occurrence: None)
  Receive Date: 20100716
  Receipt Date: 20100702
  Transmission Date: 20110219
  Serious: Yes (Death, Other)
  Sender: FDA-Public Use
  Company Number: MPS1-1000315

PATIENT
  Age: 29 Year
  Sex: Male
  Weight: 30.3 kg

DRUGS (2)
  1. ALDURAZYME [Suspect]
     Indication: MUCOPOLYSACCHARIDOSIS I
     Dosage: 20.3 MG, 1X/W, INTRAVENOUS
     Route: 042
     Dates: start: 20070103, end: 20100526
  2. ANTIBIOTICS [Concomitant]

REACTIONS (15)
  - CARDIAC DISORDER [None]
  - DEHYDRATION [None]
  - DEPRESSION [None]
  - FATIGUE [None]
  - GASTROINTESTINAL HYPOMOTILITY [None]
  - HYPERNATRAEMIA [None]
  - INSOMNIA [None]
  - IRON DEFICIENCY [None]
  - PANCREATITIS [None]
  - PANCYTOPENIA [None]
  - PSYCHOTIC DISORDER [None]
  - REFUSAL OF TREATMENT BY PATIENT [None]
  - RENAL FAILURE [None]
  - SEPSIS [None]
  - WEIGHT DECREASED [None]
